FAERS Safety Report 10770775 (Version 1)
Quarter: 2015Q1

REPORT INFORMATION
  Report Type: Spontaneous
  Country: US (occurrence: None)
  Receive Date: 20150206
  Receipt Date: 20150206
  Transmission Date: 20150721
  Serious: No
  Sender: FDA-Public Use
  Company Number: HYP201404-000026

PATIENT
  Age: 2 Year
  Sex: Female
  Weight: 11.9 kg

DRUGS (3)
  1. RAVICTI [Suspect]
     Active Substance: GLYCEROL PHENYLBUTYRATE
     Indication: UREA CYCLE ENZYME DEFICIENCY
     Route: 048
     Dates: start: 201310
  2. CARNITINE [Concomitant]
     Active Substance: CARNITINE
  3. CITRULLINE [Concomitant]
     Active Substance: CITRULLINE

REACTIONS (3)
  - Weight decreased [None]
  - Fungal infection [None]
  - Hypophagia [None]

NARRATIVE: CASE EVENT DATE: 201402
